FAERS Safety Report 6119684-5 (Version None)
Quarter: 2009Q1

REPORT INFORMATION
  Report Type: 
  Country: None (occurrence: None)
  Receive Date: 20090316
  Receipt Date: 20090310
  Transmission Date: 20090719
  Serious: Yes (Hospitalization)
  Sender: FDA-Public Use
  Company Number: US-ASTRAZENECA-2009UW06406

PATIENT
  Age: 80 Year
  Sex: Male
  Weight: 79.4 kg

DRUGS (6)
  1. CASODEX [Suspect]
     Indication: NEOPLASM MALIGNANT
     Route: 048
     Dates: start: 20060101
  2. ZESTRIL [Concomitant]
     Indication: HYPERTENSION
  3. TOPROL-XL [Concomitant]
     Indication: HYPERTENSION
  4. PLAVIX [Concomitant]
     Indication: CARDIAC DISORDER
  5. ASPIRIN [Concomitant]
     Indication: CARDIAC DISORDER
  6. INSULIN [Concomitant]
     Indication: DIABETES MELLITUS

REACTIONS (1)
  - PANCREATITIS [None]
